FAERS Safety Report 8459348-6 (Version None)
Quarter: 2012Q2

REPORT INFORMATION
  Report Type: 
  Country: None (occurrence: None)
  Receive Date: 20120622
  Receipt Date: 20120614
  Transmission Date: 20120825
  Serious: Yes (Hospitalization)
  Sender: FDA-Public Use
  Company Number: US-GENZYME-FABR-1002578

PATIENT
  Sex: Female
  Weight: 88.45 kg

DRUGS (2)
  1. ACETAMINOPHEN [Suspect]
     Indication: PREMEDICATION
     Dosage: 1000 MG, UNK
     Route: 065
  2. FABRAZYME [Suspect]
     Indication: FABRY'S DISEASE
     Dosage: 1.01 MG/KG, Q2W
     Route: 042
     Dates: start: 20030101

REACTIONS (3)
  - FALL [None]
  - HEMIPARESIS [None]
  - BALANCE DISORDER [None]
